FAERS Safety Report 8330860-3 (Version None)
Quarter: 2012Q2

REPORT INFORMATION
  Report Type: 
  Country: None (occurrence: None)
  Receive Date: 20120502
  Receipt Date: 20120402
  Transmission Date: 20120825
  Serious: No
  Sender: FDA-Public Use
  Company Number: US-AMGEN-USASP2012020877

PATIENT
  Age: 63 Year
  Sex: Female

DRUGS (2)
  1. ENBREL [Suspect]
     Indication: RHEUMATOID ARTHRITIS
     Dosage: 50 MG, QWK
     Dates: start: 20111001
  2. TREXALL [Concomitant]
     Dosage: 10 MG, UNK
     Dates: start: 20040101

REACTIONS (3)
  - IRRITABILITY [None]
  - INCREASED APPETITE [None]
  - WEIGHT INCREASED [None]
